FAERS Safety Report 24013077 (Version 2)
Quarter: 2024Q3

REPORT INFORMATION
  Report Type: Spontaneous
  Country: FR (occurrence: FR)
  Receive Date: 20240626
  Receipt Date: 20240703
  Transmission Date: 20241017
  Serious: Yes (Other)
  Sender: SANDOZ
  Company Number: FR-CHEPLA-2023007632

PATIENT
  Age: 30 Year
  Sex: Male

DRUGS (20)
  1. PREDNISONE [Suspect]
     Active Substance: PREDNISONE
     Indication: Pulmonary sarcoidosis
     Dosage: UNK
     Route: 065
  2. METHOTREXATE [Suspect]
     Active Substance: METHOTREXATE
     Indication: Pulmonary sarcoidosis
     Dosage: UNK
     Route: 065
  3. PREDNISONE [Suspect]
     Active Substance: PREDNISONE
     Dosage: UNTIL THE CONSULTATION IN JUL-2019UNK
     Route: 065
  4. PREDNISONE [Suspect]
     Active Substance: PREDNISONE
     Indication: Pulmonary sarcoidosis
     Dosage: UNK
     Route: 065
  5. PREDNISONE [Suspect]
     Active Substance: PREDNISONE
     Dosage: UNK
     Route: 065
     Dates: end: 20190603
  6. PREDNISONE [Suspect]
     Active Substance: PREDNISONE
     Dosage: UNK
     Route: 065
     Dates: end: 20190527
  7. PREDNISONE [Suspect]
     Active Substance: PREDNISONE
     Dosage: UNK
     Route: 065
  8. PREDNISONE [Suspect]
     Active Substance: PREDNISONE
     Dosage: UNK
     Route: 065
     Dates: end: 20190520
  9. PREDNISONE [Suspect]
     Active Substance: PREDNISONE
     Dosage: UNK
     Route: 065
     Dates: end: 20190513
  10. PREDNISONE [Suspect]
     Active Substance: PREDNISONE
     Dosage: MORNING AT 8 AMUNK
     Route: 065
     Dates: end: 20190508
  11. PREDNISONE [Suspect]
     Active Substance: PREDNISONE
     Dosage: UNK
     Route: 065
  12. SOLU-MEDROL [Suspect]
     Active Substance: METHYLPREDNISOLONE SODIUM SUCCINATE
     Indication: Pulmonary sarcoidosis
     Dosage: UNK
     Route: 065
  13. SOLU-MEDROL [Suspect]
     Active Substance: METHYLPREDNISOLONE SODIUM SUCCINATE
     Dosage: HIGH-DOSE CORTICOSTEROID TREATMENTUNK
     Route: 065
  14. DUPIXENT [Concomitant]
     Active Substance: DUPILUMAB
     Indication: Dermatitis atopic
     Dosage: UNK
     Route: 065
     Dates: start: 201803
  15. NERISONE [Concomitant]
     Active Substance: DIFLUCORTOLONE VALERATE
     Indication: Eczema
     Dosage: USES SMALL AMOUNTS
     Route: 065
  16. NERISONE [Concomitant]
     Active Substance: DIFLUCORTOLONE VALERATE
     Indication: Hand dermatitis
  17. OLUMIANT [Concomitant]
     Active Substance: BARICITINIB
     Indication: Dermatitis atopic
     Dosage: 4 MG, QD
     Route: 065
  18. OLUMIANT [Concomitant]
     Active Substance: BARICITINIB
     Dosage: UNK
     Route: 065
  19. DESONIDE [Concomitant]
     Active Substance: DESONIDE
     Indication: Hand dermatitis
     Dosage: USES SMALL AMOUNTS
     Route: 065
  20. DESONIDE [Concomitant]
     Active Substance: DESONIDE
     Indication: Eczema

REACTIONS (1)
  - Osteonecrosis [Recovering/Resolving]

NARRATIVE: CASE EVENT DATE: 20210101
